FAERS Safety Report 5084882-9 (Version None)
Quarter: 2006Q3

REPORT INFORMATION
  Report Type: 
  Country: None (occurrence: None)
  Receive Date: 20060821
  Receipt Date: 20060808
  Transmission Date: 20061208
  Serious: Yes (Other)
  Sender: FDA-Public Use
  Company Number: AU-NOVOPROD-256108

PATIENT
  Age: 54 Year
  Sex: Female
  Weight: 70 kg

DRUGS (3)
  1. NOVOSEVEN [Suspect]
     Indication: CEREBRAL HAEMORRHAGE
     Dosage: 6 MG, SINGLE
     Dates: start: 20051123
  2. PLATELETS [Concomitant]
     Indication: CEREBRAL HAEMORRHAGE
     Dosage: 1 U, 24 HRS POST RFVIIA ADMINISTRATION
  3. GELOFUSINE                         /00203801/ [Concomitant]
     Dosage: 200 ML, 24 HRS POST RFVIIA ADMINISTRATION

REACTIONS (2)
  - RENAL FAILURE ACUTE [None]
  - RESPIRATORY FAILURE [None]
